FAERS Safety Report 7976817-3 (Version None)
Quarter: 2011Q4

REPORT INFORMATION
  Report Type: 
  Country: None (occurrence: None)
  Receive Date: 20111213
  Receipt Date: 20111103
  Transmission Date: 20120403
  Serious: Yes (Hospitalization)
  Sender: FDA-Public Use
  Company Number: US-AMGEN-USASP2011054402

PATIENT
  Age: 62 Year
  Sex: Female

DRUGS (3)
  1. HYDROXYCHLOROQUINE [Concomitant]
     Dosage: UNK
     Dates: start: 20030618
  2. ENBREL [Suspect]
     Indication: RHEUMATOID ARTHRITIS
     Dosage: 50 MG, QWK
     Route: 058
     Dates: start: 20110915, end: 20111027
  3. TRAMADOL HCL [Concomitant]
     Dosage: UNK
     Dates: start: 20030618

REACTIONS (4)
  - URINARY TRACT INFECTION BACTERIAL [None]
  - ANXIETY [None]
  - MALAISE [None]
  - NON-CARDIAC CHEST PAIN [None]
